FAERS Safety Report 8062506-6 (Version None)
Quarter: 2011Q4

REPORT INFORMATION
  Report Type: 
  Country: None (occurrence: None)
  Receive Date: 20111220
  Receipt Date: 20111013
  Transmission Date: 20120403
  Serious: Yes (Hospitalization)
  Sender: FDA-Public Use
  Company Number: PHEH2011US06816

PATIENT
  Age: 58 Year
  Sex: Female

DRUGS (1)
  1. MYFORTIC [Suspect]
     Indication: RENAL TRANSPLANT
     Dosage: 720 MG, BID, ORAL
     Route: 048
     Dates: start: 20060101

REACTIONS (1)
  - CLOSTRIDIUM DIFFICILE COLITIS [None]
